FAERS Safety Report 9837951 (Version 4)
Quarter: 2014Q4

REPORT INFORMATION
  Report Type: Spontaneous
  Country: US (occurrence: US)
  Receive Date: 20140123
  Receipt Date: 20141107
  Transmission Date: 20150529
  Serious: Yes (Other)
  Sender: FDA-Public Use
  Company Number: US-BAYER-2014-010313

PATIENT
  Age: 21 Year
  Sex: Female
  Weight: 72.56 kg

DRUGS (3)
  1. NYSTATIN W/TRIAMCINOLONE [NYSTATIN,TRIAMCINOLONE] [Concomitant]
     Dosage: 15 UNK, UNK
     Dates: start: 20120906
  2. METRONIDAZOLE. [Concomitant]
     Active Substance: METRONIDAZOLE
     Dosage: 0.75 %, UNK
     Dates: start: 20120906
  3. MIRENA [Suspect]
     Active Substance: LEVONORGESTREL
     Indication: CONTRACEPTION
     Dosage: 20 MCG/24HR, CONT
     Route: 015
     Dates: start: 20090720, end: 20121115

REACTIONS (10)
  - Pelvic discomfort [None]
  - Device dislocation [None]
  - Polycystic ovaries [None]
  - Embedded device [None]
  - Device difficult to use [None]
  - Emotional distress [None]
  - Device issue [None]
  - Injury [None]
  - Uterine polyp [None]
  - Pain [None]

NARRATIVE: CASE EVENT DATE: 201209
